FAERS Safety Report 25891261 (Version 1)
Quarter: 2025Q4

REPORT INFORMATION
  Report Type: Spontaneous
  Country: US (occurrence: US)
  Receive Date: 20251007
  Receipt Date: 20251007
  Transmission Date: 20260117
  Serious: No
  Sender: GALDERMA
  Company Number: US-GALDERMA-US2025017643

PATIENT

DRUGS (1)
  1. NEMLUVIO [Suspect]
     Active Substance: NEMOLIZUMAB-ILTO
     Indication: Dermatitis atopic
     Route: 058

REACTIONS (4)
  - Rash [Unknown]
  - Blister [Unknown]
  - Skin exfoliation [Unknown]
  - Drug ineffective [Unknown]
